FAERS Safety Report 6412767-1 (Version None)
Quarter: 2009Q4

REPORT INFORMATION
  Report Type: 
  Country: None (occurrence: None)
  Receive Date: 20091023
  Receipt Date: 20091020
  Transmission Date: 20100525
  Serious: No
  Sender: FDA-Public Use
  Company Number: US-ROXANE LABORATORIES, INC.-2009-RO-01078RO

PATIENT
  Sex: Female

DRUGS (3)
  1. MYCOPHENOLATE MOFETIL [Suspect]
     Indication: SCLERODERMA
     Dosage: 2000 MG
     Route: 048
     Dates: end: 20091019
  2. NEXIUM [Concomitant]
  3. THYROID PILL [Concomitant]
     Indication: THYROID DISORDER

REACTIONS (5)
  - BLOOD PRESSURE DECREASED [None]
  - DEHYDRATION [None]
  - HEART RATE INCREASED [None]
  - INSOMNIA [None]
  - NERVOUSNESS [None]
